FAERS Safety Report 22349660 (Version 2)
Quarter: 2023Q4

REPORT INFORMATION
  Report Type: Report from Study
  Country: US (occurrence: US)
  Receive Date: 20230522
  Receipt Date: 20231107
  Transmission Date: 20240110
  Serious: Yes (Other)
  Sender: FDA-Public Use
  Company Number: US-ABBVIE-5174008

PATIENT
  Sex: Female

DRUGS (1)
  1. RINVOQ [Suspect]
     Active Substance: UPADACITINIB
     Indication: Rheumatoid arthritis
     Route: 048

REACTIONS (6)
  - Systemic lupus erythematosus [Not Recovered/Not Resolved]
  - Oral disorder [Unknown]
  - Illness [Unknown]
  - Fall [Unknown]
  - Nasopharyngitis [Unknown]
  - Shoulder fracture [Unknown]
